FAERS Safety Report 9883677 (Version 2)
Quarter: 2014Q2

REPORT INFORMATION
  Report Type: Spontaneous
  Country: JP (occurrence: JP)
  Receive Date: 20140210
  Receipt Date: 20140430
  Transmission Date: 20141212
  Serious: Yes (Life-Threatening)
  Sender: FDA-Public Use
  Company Number: JP-ROCHE-1346247

PATIENT
  Age: 8 Decade
  Sex: Female

DRUGS (5)
  1. HERCEPTIN [Suspect]
     Indication: BREAST CANCER RECURRENT
     Route: 041
     Dates: start: 20131024, end: 20131024
  2. HERCEPTIN [Suspect]
     Route: 041
     Dates: start: 20131114, end: 20131205
  3. PERJETA [Suspect]
     Indication: BREAST CANCER RECURRENT
     Dosage: STRENGTH: 420MG/14ML
     Route: 041
     Dates: start: 20131024, end: 20131024
  4. PERJETA [Suspect]
     Route: 041
     Dates: start: 20131114, end: 20131205
  5. DOCETAXEL [Suspect]
     Indication: BREAST CANCER RECURRENT
     Route: 041
     Dates: start: 20131024, end: 20131205

REACTIONS (1)
  - Pulmonary embolism [Recovered/Resolved]
